FAERS Safety Report 7112027-X (Version None)
Quarter: 2010Q4

REPORT INFORMATION
  Report Type: 
  Country: None (occurrence: None)
  Receive Date: 20101119
  Receipt Date: 20101111
  Transmission Date: 20110411
  Serious: No
  Sender: FDA-Public Use
  Company Number: US-PFIZER INC-2010146924

PATIENT
  Sex: Female
  Weight: 58 kg

DRUGS (3)
  1. CHANTIX [Suspect]
     Indication: SMOKING CESSATION THERAPY
     Dosage: 1 MG, 2X/DAY
     Route: 048
     Dates: start: 20101001
  2. AXID [Concomitant]
     Indication: DYSPEPSIA
     Dosage: 20 MG, AS NEEDED
     Route: 048
  3. TYLENOL (CAPLET) [Concomitant]
     Dosage: UNK
     Route: 048

REACTIONS (7)
  - ABDOMINAL PAIN UPPER [None]
  - DRUG ADMINISTRATION ERROR [None]
  - EUPHORIC MOOD [None]
  - FEELING HOT [None]
  - MALAISE [None]
  - NAUSEA [None]
  - VOMITING [None]
